FAERS Safety Report 8844073 (Version 1)
Quarter: 2012Q4

REPORT INFORMATION
  Report Type: Report from Study
  Country: DE (occurrence: DE)
  Receive Date: 20121016
  Receipt Date: 20121016
  Transmission Date: 20130627
  Serious: Yes (Hospitalization)
  Sender: FDA-Public Use
  Company Number: DE-SANOFI-AVENTIS-2012SA071487

PATIENT
  Age: 65 Year
  Sex: Male
  Weight: 58.2 kg

DRUGS (7)
  1. OXALIPLATIN [Suspect]
     Indication: METASTATIC COLORECTAL CANCER
     Dosage: 85 mg/m2 (150)
     Route: 042
     Dates: start: 20120822
  2. BEVACIZUMAB [Suspect]
     Indication: METASTATIC COLORECTAL CANCER
     Dosage: 5 mg/kg (310)
     Route: 042
     Dates: start: 20120822
  3. IRINOTECAN [Suspect]
     Indication: METASTATIC COLORECTAL CANCER
     Dosage: 290 mg/m2 (150)
     Route: 042
     Dates: start: 20120822
  4. LEUCOVORIN CALCIUM [Suspect]
     Indication: METASTATIC COLORECTAL CANCER
     Dosage: 200 mg/m2 (350)
     Route: 042
     Dates: start: 20120822
  5. FLUOROURACIL [Suspect]
     Indication: METASTATIC COLORECTAL CANCER
     Dosage: 3200 mg/m2 (5200)
     Route: 042
     Dates: start: 20120822
  6. FENTANYL [Concomitant]
     Indication: BACK PAIN
     Dosage: dose: 75 mg (day 3)
     Route: 062
  7. ISONIAZIDE [Concomitant]
     Dates: start: 20120822

REACTIONS (6)
  - Periodontitis [Recovering/Resolving]
  - Diarrhoea [Recovered/Resolved]
  - Dehydration [Recovered/Resolved]
  - Diarrhoea [Recovering/Resolving]
  - Hypoaesthesia oral [Recovering/Resolving]
  - Gingival bleeding [Recovering/Resolving]
